FAERS Safety Report 5369944-0 (Version None)
Quarter: 2007Q2

REPORT INFORMATION
  Report Type: 
  Country: None (occurrence: None)
  Receive Date: 20070621
  Receipt Date: 20070605
  Transmission Date: 20071010
  Serious: Yes (Hospitalization)
  Sender: FDA-Public Use
  Company Number: 157149ISR

PATIENT
  Age: 61 Year
  Sex: Female

DRUGS (2)
  1. METFORMIN HCL [Suspect]
     Indication: DIABETES MELLITUS NON-INSULIN-DEPENDENT
     Dosage: 2 GRAM (1 GRAM, 2 IN 1 D); ORAL
     Route: 048
  2. ROFECOXIB [Suspect]
     Dosage: 5 MG (2.5 MG, 2 IN 1 D); ORAL
     Route: 048

REACTIONS (8)
  - DRUG INTERACTION [None]
  - GINGIVAL BLEEDING [None]
  - HAEMODIALYSIS [None]
  - LACTIC ACIDOSIS [None]
  - PROTHROMBIN TIME PROLONGED [None]
  - RENAL FAILURE [None]
  - RESPIRATORY DISTRESS [None]
  - TACHYCARDIA [None]
